FAERS Safety Report 7326916-4 (Version None)
Quarter: 2011Q1

REPORT INFORMATION
  Report Type: 
  Country: None (occurrence: None)
  Receive Date: 20110302
  Receipt Date: 20090909
  Transmission Date: 20110831
  Serious: No
  Sender: FDA-Public Use
  Company Number: US-PFIZER INC-2009266988

PATIENT

DRUGS (1)
  1. PHENYTOIN [Suspect]
     Dosage: UNK

REACTIONS (3)
  - HAEMORRHAGE [None]
  - DECREASED APPETITE [None]
  - MALAISE [None]
